FAERS Safety Report 18037041 (Version 4)
Quarter: 2020Q3

REPORT INFORMATION
  Report Type: Spontaneous
  Country: US (occurrence: US)
  Receive Date: 20200717
  Receipt Date: 20200928
  Transmission Date: 20201103
  Serious: Yes (Other)
  Sender: FDA-Public Use
  Company Number: US-009507513-2007USA005471

PATIENT
  Age: 67 Year
  Sex: Male

DRUGS (5)
  1. ASMANEX [Suspect]
     Active Substance: MOMETASONE FUROATE
     Indication: ASTHMA
     Dosage: 120 DOSES (1 PUFF PER DAY, 2 PUFFS AS NEEDED), ORAL INHALER
     Route: 055
     Dates: start: 2010
  2. ASMANEX [Suspect]
     Active Substance: MOMETASONE FUROATE
     Dosage: 120 DOSES (1 PUFF PER DAY, 2 PUFFS AS NEEDED), ORAL INHALER
     Route: 055
     Dates: start: 202001
  3. ASMANEX [Suspect]
     Active Substance: MOMETASONE FUROATE
     Indication: ASTHMA
     Dosage: 120 DOSES (1 PUFF PER DAY, 2 PUFFS AS NEEDED), ORAL INHALER
     Route: 055
     Dates: start: 20200514, end: 20200716
  4. ALBUTEROL. [Concomitant]
     Active Substance: ALBUTEROL
     Dosage: UNK
  5. ASMANEX [Suspect]
     Active Substance: MOMETASONE FUROATE
     Dosage: UNK
     Dates: start: 2020

REACTIONS (10)
  - Product contamination microbial [Recovered/Resolved]
  - Poor quality device used [Unknown]
  - Illness [Recovered/Resolved]
  - Product contamination microbial [Unknown]
  - Pneumonia [Unknown]
  - Poor quality device used [Unknown]
  - Product contamination microbial [Unknown]
  - Poor quality device used [Unknown]
  - Pneumonia [Unknown]
  - Product contamination microbial [Unknown]

NARRATIVE: CASE EVENT DATE: 2020
